FAERS Safety Report 5115328-X (Version None)
Quarter: 2006Q3

REPORT INFORMATION
  Report Type: 
  Country: None (occurrence: None)
  Receive Date: 20060922
  Receipt Date: 20060914
  Transmission Date: 20061208
  Serious: Yes (Hospitalization)
  Sender: FDA-Public Use
  Company Number: 2006SP001855

PATIENT
  Sex: Female

DRUGS (6)
  1. CLARITIN REDITABS [Suspect]
     Indication: ASTHMA
     Dosage: 10 MG; PO
     Route: 048
     Dates: start: 20060907, end: 20060907
  2. AVELOX [Suspect]
     Indication: BRONCHITIS ACUTE
     Dosage: 400 MG; PO
     Route: 048
     Dates: start: 20060907, end: 20060907
  3. ASVERIN [Concomitant]
  4. ANTOBRON [Concomitant]
  5. SINGULAIR [Concomitant]
  6. HOKUNALIN [Concomitant]

REACTIONS (3)
  - ANAPHYLACTIC SHOCK [None]
  - DEPRESSED LEVEL OF CONSCIOUSNESS [None]
  - POST-TRAUMATIC STRESS DISORDER [None]
